FAERS Safety Report 25345544 (Version 1)
Quarter: 2025Q2

REPORT INFORMATION
  Report Type: Report from Study
  Country: US (occurrence: US)
  Receive Date: 20250522
  Receipt Date: 20250522
  Transmission Date: 20250717
  Serious: Yes (Other)
  Sender: ABBVIE
  Company Number: US-ABBVIE-6289924

PATIENT
  Age: 66 Year
  Sex: Male

DRUGS (1)
  1. VENCLEXTA [Suspect]
     Active Substance: VENETOCLAX
     Indication: Myelodysplastic syndrome
     Route: 048
     Dates: start: 202504

REACTIONS (5)
  - Platelet transfusion [Unknown]
  - Tooth abscess [Unknown]
  - Nausea [Unknown]
  - Gastrointestinal disorder [Unknown]
  - Depression [Unknown]

NARRATIVE: CASE EVENT DATE: 20250101
